FAERS Safety Report 6391350-0 (Version None)
Quarter: 2009Q4

REPORT INFORMATION
  Report Type: 
  Country: None (occurrence: None)
  Receive Date: 20091006
  Receipt Date: 20091006
  Transmission Date: 20100525
  Serious: No
  Sender: FDA-Public Use
  Company Number: None

PATIENT
  Age: 22 Year
  Sex: Female
  Weight: 61.2356 kg

DRUGS (9)
  1. ADVAIR DISKUS 500/50 [Suspect]
     Indication: ASTHMA
     Dosage: 500 MCG/50 MCG, ONE INHALATION TWICE DAILY BUCCAL
     Route: 002
     Dates: start: 20070912, end: 20090901
  2. NASONEX [Concomitant]
  3. LEVLEN 28 [Concomitant]
  4. OVRAL [Concomitant]
  5. XOPENEX [Concomitant]
  6. NEXIUM [Concomitant]
  7. PROTONIX [Concomitant]
  8. PRILOSEC [Concomitant]
  9. ZYRTEC [Concomitant]

REACTIONS (12)
  - ASTHMA [None]
  - CONDITION AGGRAVATED [None]
  - FATIGUE [None]
  - GASTROOESOPHAGEAL REFLUX DISEASE [None]
  - IMPAIRED WORK ABILITY [None]
  - INSOMNIA [None]
  - LOSS OF DREAMING [None]
  - MALAISE [None]
  - POOR QUALITY SLEEP [None]
  - QUALITY OF LIFE DECREASED [None]
  - SLEEP APNOEA SYNDROME [None]
  - THERAPEUTIC RESPONSE DELAYED [None]
